FAERS Safety Report 7981152-3 (Version None)
Quarter: 2011Q4

REPORT INFORMATION
  Report Type: 
  Country: None (occurrence: None)
  Receive Date: 20111212
  Receipt Date: 20111124
  Transmission Date: 20120403
  Serious: Yes (Life-Threatening, Hospitalization)
  Sender: FDA-Public Use
  Company Number: GER/GER/11/0022210

PATIENT

DRUGS (3)
  1. CITALOPRAM HYDROBROMIDE [Suspect]
     Indication: PRODUCT USED FOR UNKNOWN INDICATION
     Dosage: 2.8 GM
  2. ETHANOL (ETHANOL) [Suspect]
     Indication: PRODUCT USED FOR UNKNOWN INDICATION
     Dosage: 1.98 G/L
  3. QUETIAPINE FUMARATE [Suspect]
     Indication: PRODUCT USED FOR UNKNOWN INDICATION
     Dosage: 8 GM

REACTIONS (10)
  - ARRHYTHMIA [None]
  - DELIRIUM [None]
  - CONVULSION [None]
  - COMA [None]
  - MULTIPLE DRUG OVERDOSE [None]
  - PNEUMONIA [None]
  - SOMNOLENCE [None]
  - CARDIOTOXICITY [None]
  - ALCOHOL USE [None]
  - SUICIDAL IDEATION [None]
